FAERS Safety Report 6119424-X (Version None)
Quarter: 2009Q1

REPORT INFORMATION
  Report Type: 
  Country: None (occurrence: None)
  Receive Date: 20090316
  Receipt Date: 20090306
  Transmission Date: 20090719
  Serious: Yes (Death, Hospitalization)
  Sender: FDA-Public Use
  Company Number: A0772846A

PATIENT
  Age: 70 Year
  Sex: Female

DRUGS (17)
  1. AVANDIA [Suspect]
     Indication: DIABETES MELLITUS
     Dosage: 8MG PER DAY
     Route: 048
     Dates: start: 20030514, end: 20070112
  2. PREMARIN [Concomitant]
  3. MECLIZINE [Concomitant]
  4. CEPHALEXIN [Concomitant]
  5. TIZANIDINE HCL [Concomitant]
  6. CIPROFLOXACIN [Concomitant]
  7. PROMETHAZINE [Concomitant]
  8. CLONIDINE [Concomitant]
  9. ACIPHEX [Concomitant]
  10. CLOPIDOGREL [Concomitant]
  11. CARBATROL [Concomitant]
  12. DURAGESIC-100 [Concomitant]
  13. NORVASC [Concomitant]
  14. COZAAR [Concomitant]
  15. LOTREL [Concomitant]
  16. PREVACID [Concomitant]
  17. METHOCARBAMOL [Concomitant]

REACTIONS (3)
  - CARDIAC FAILURE CONGESTIVE [None]
  - DEATH [None]
  - MYOCARDIAL INFARCTION [None]
